FAERS Safety Report 21859130 (Version 5)
Quarter: 2023Q1

REPORT INFORMATION
  Report Type: Report from Study
  Country: US (occurrence: US)
  Receive Date: 20230113
  Receipt Date: 20230331
  Transmission Date: 20230418
  Serious: No
  Sender: FDA-Public Use
  Company Number: US-002147023-NVSC2023US007348

PATIENT
  Sex: Female

DRUGS (1)
  1. KESIMPTA [Suspect]
     Active Substance: OFATUMUMAB
     Indication: Product used for unknown indication
     Dosage: UNK
     Route: 065

REACTIONS (5)
  - Nervousness [Unknown]
  - Feeling abnormal [Unknown]
  - Upper respiratory tract infection [Unknown]
  - Injection site bruising [Not Recovered/Not Resolved]
  - Wrong technique in device usage process [Unknown]
